FAERS Safety Report 22201417 (Version 1)
Quarter: 2023Q2

REPORT INFORMATION
  Report Type: Spontaneous
  Country: US (occurrence: None)
  Receive Date: 20230411
  Receipt Date: 20230411
  Transmission Date: 20230721
  Serious: Yes (Death)
  Sender: FDA-Public Use
  Company Number: None

PATIENT
  Age: 53 Year
  Sex: Male
  Weight: 90.72 kg

DRUGS (7)
  1. EVEROLIMUS [Suspect]
     Active Substance: EVEROLIMUS
     Indication: Renal cancer
     Dosage: 5MG DAILY ORAL
     Route: 048
  2. ASPIRIN [Concomitant]
  3. HYDROCODONE AND ACETAMINOPHEN [Concomitant]
  4. LENVIMA [Concomitant]
  5. MORPHINE [Concomitant]
  6. SENEXON-S [Concomitant]
  7. XARELTO [Concomitant]

REACTIONS (1)
  - Death [None]

NARRATIVE: CASE EVENT DATE: 20230411
